FAERS Safety Report 17296779 (Version 2)
Quarter: 2020Q1

REPORT INFORMATION
  Report Type: Spontaneous
  Country: US (occurrence: US)
  Receive Date: 20200121
  Receipt Date: 20200313
  Transmission Date: 20200409
  Serious: No
  Sender: FDA-Public Use
  Company Number: US-009507513-2001USA007039

PATIENT
  Age: 23 Year
  Sex: Female

DRUGS (1)
  1. NEXPLANON [Suspect]
     Active Substance: ETONOGESTREL
     Indication: CONTRACEPTION
     Dosage: 1 IMPLANT, CONTINUOUS
     Route: 015
     Dates: start: 201803

REACTIONS (2)
  - Incorrect route of product administration [Unknown]
  - Acne [Unknown]

NARRATIVE: CASE EVENT DATE: 201803
